FAERS Safety Report 20102712 (Version 1)
Quarter: 2021Q4

REPORT INFORMATION
  Report Type: Spontaneous
  Country: FR (occurrence: FR)
  Receive Date: 20211123
  Receipt Date: 20211123
  Transmission Date: 20220304
  Serious: Yes (Other)
  Sender: FDA-Public Use
  Company Number: FR-GLAXOSMITHKLINE-FR2021GSK196484

PATIENT
  Sex: Female

DRUGS (1)
  1. VALACYCLOVIR HYDROCHLORIDE [Suspect]
     Active Substance: VALACYCLOVIR HYDROCHLORIDE
     Indication: Cytomegalovirus infection
     Dosage: 4 G, BID
     Route: 048

REACTIONS (4)
  - Acute kidney injury [Recovered/Resolved]
  - Polyuria [Recovered/Resolved]
  - Nephropathy toxic [Recovered/Resolved]
  - Exposure during pregnancy [Unknown]
